FAERS Safety Report 21425004 (Version 6)
Quarter: 2024Q1

REPORT INFORMATION
  Report Type: Report from Study
  Country: US (occurrence: US)
  Receive Date: 20221008
  Receipt Date: 20240214
  Transmission Date: 20240410
  Serious: Yes (Other)
  Sender: FDA-Public Use
  Company Number: US-ABBVIE-4140188

PATIENT
  Sex: Male

DRUGS (2)
  1. IMBRUVICA [Suspect]
     Active Substance: IBRUTINIB
     Indication: Chronic lymphocytic leukaemia
     Route: 048
     Dates: start: 20200521
  2. IMBRUVICA [Suspect]
     Active Substance: IBRUTINIB
     Indication: Chronic lymphocytic leukaemia
     Dosage: DOSE LOWERED
     Route: 048

REACTIONS (16)
  - Chronic kidney disease [Unknown]
  - White blood cell count abnormal [Unknown]
  - Immune system disorder [Unknown]
  - Glomerular filtration rate abnormal [Unknown]
  - Blood potassium increased [Unknown]
  - COVID-19 [Unknown]
  - Blood pressure abnormal [Unknown]
  - Renal impairment [Unknown]
  - Blood creatinine abnormal [Unknown]
  - Blood glucose increased [Unknown]
  - Depression [Unknown]
  - Weight decreased [Unknown]
  - Pollakiuria [Unknown]
  - Protein urine present [Unknown]
  - Muscle spasms [Unknown]
  - Gastrointestinal disorder [Unknown]
